FAERS Safety Report 18510626 (Version 1)
Quarter: 2020Q4

REPORT INFORMATION
  Report Type: Spontaneous
  Country: CH (occurrence: CH)
  Receive Date: 20201117
  Receipt Date: 20201117
  Transmission Date: 20210114
  Serious: Yes (Other)
  Sender: FDA-Public Use
  Company Number: CH-TEVA-2020-CH-1850290

PATIENT

DRUGS (1)
  1. ROSUVASTATIN-MEPHA [Suspect]
     Active Substance: ROSUVASTATIN
     Route: 065

REACTIONS (36)
  - Constipation [Unknown]
  - Myalgia [Unknown]
  - Urticaria [Unknown]
  - Neuropathy peripheral [Unknown]
  - Pancreatitis [Unknown]
  - Nightmare [Unknown]
  - Gynaecomastia [Unknown]
  - Nausea [Unknown]
  - Respiratory disorder [Unknown]
  - Sleep disorder [Unknown]
  - Sexual dysfunction [Unknown]
  - Breast enlargement [Unknown]
  - Muscular weakness [Unknown]
  - Hypoaesthesia [Unknown]
  - Renal impairment [Unknown]
  - Pruritus [Unknown]
  - Amnesia [Unknown]
  - Pyrexia [Unknown]
  - Fluid retention [Unknown]
  - Insomnia [Unknown]
  - Paraesthesia [Unknown]
  - Hepatitis [Unknown]
  - Headache [Unknown]
  - Cough [Unknown]
  - Dizziness [Unknown]
  - Abdominal pain [Unknown]
  - Asthenia [Unknown]
  - Muscle disorder [Unknown]
  - Jaundice [Unknown]
  - Dyspnoea [Unknown]
  - Glycosylated haemoglobin increased [Unknown]
  - Tendon disorder [Unknown]
  - Rash [Unknown]
  - Hypersensitivity [Unknown]
  - Blood urine present [Unknown]
  - Depression [Unknown]
